FAERS Safety Report 13533019 (Version 1)
Quarter: 2017Q2

REPORT INFORMATION
  Report Type: Report from Study
  Country: US (occurrence: US)
  Receive Date: 20170510
  Receipt Date: 20170510
  Transmission Date: 20170830
  Serious: Yes (Other)
  Sender: FDA-Public Use
  Company Number: PHEH2017US013162

PATIENT
  Sex: Male

DRUGS (1)
  1. JADENU [Suspect]
     Active Substance: DEFERASIROX
     Indication: PRODUCT USED FOR UNKNOWN INDICATION
     Dosage: UNK
     Route: 065

REACTIONS (9)
  - Leukaemia [Unknown]
  - Gait disturbance [Unknown]
  - Stress [Unknown]
  - Bone cancer [Unknown]
  - Full blood count decreased [Unknown]
  - Blood iron increased [Unknown]
  - Platelet count decreased [Unknown]
  - Haemorrhage [Unknown]
  - Splenomegaly [Unknown]
